FAERS Safety Report 7368958-9 (Version None)
Quarter: 2011Q1

REPORT INFORMATION
  Report Type: 
  Country: None (occurrence: None)
  Receive Date: 20110314
  Receipt Date: 20110301
  Transmission Date: 20110831
  Serious: Yes (Other)
  Sender: FDA-Public Use
  Company Number: 027073

PATIENT
  Sex: Male
  Weight: 65.8 kg

DRUGS (5)
  1. LOSEC /00661201/ [Concomitant]
  2. CIMZIA [Suspect]
     Indication: RHEUMATOID ARTHRITIS
     Dosage: (200 MG 1X/2 WEEKS SUBCUTANEOUS)
     Route: 058
     Dates: start: 20100401, end: 20100901
  3. SALMON [Concomitant]
  4. COD LIVER [Concomitant]
  5. ZOPICLONE [Concomitant]

REACTIONS (5)
  - NASOPHARYNGITIS [None]
  - SPUTUM DISCOLOURED [None]
  - LOWER RESPIRATORY TRACT INFECTION [None]
  - BRONCHITIS [None]
  - SINUSITIS [None]
